FAERS Safety Report 14856025 (Version 10)
Quarter: 2020Q2

REPORT INFORMATION
  Report Type: Spontaneous
  Country: US (occurrence: US)
  Receive Date: 20180507
  Receipt Date: 20200401
  Transmission Date: 20200713
  Serious: Yes (Hospitalization)
  Sender: FDA-Public Use
  Company Number: US-ACTELION-A-US2018-171081

PATIENT
  Age: 8 Year
  Sex: Female
  Weight: 46.26 kg

DRUGS (24)
  1. DIGOXIN. [Concomitant]
     Active Substance: DIGOXIN
     Dosage: 250 MCG, QD
     Route: 048
     Dates: start: 20120605
  2. PULMICORT TURBUHALER [Concomitant]
     Active Substance: BUDESONIDE
  3. IMMUNOGLOBULIN [Concomitant]
     Dosage: UNK, Q1MONTH
     Route: 042
  4. MAGNESIUM OXIDE. [Concomitant]
     Active Substance: MAGNESIUM OXIDE
     Dosage: 400 MG, BID
     Route: 048
     Dates: start: 20120604
  5. PEDIASURE [Concomitant]
     Active Substance: VITAMINS
     Dosage: 1 DF, QD
     Route: 048
  6. FERROUS SULFATE. [Concomitant]
     Active Substance: FERROUS SULFATE
     Dosage: 325 MG, BID
     Route: 048
  7. MULTIVITAMIN [Concomitant]
     Active Substance: VITAMINS
     Dosage: 1 DF, QD
     Route: 048
  8. TRACLEER [Suspect]
     Active Substance: BOSENTAN
     Indication: PULMONARY ARTERIAL HYPERTENSION
     Dosage: 62.5 MG, BID
     Route: 048
     Dates: start: 20090910
  9. CALCITRIOL. [Concomitant]
     Active Substance: CALCITRIOL
     Dosage: 0.25 MCG, QD
     Dates: start: 20120605
  10. POLYETHYLENE GLYCOL 3350. [Concomitant]
     Active Substance: POLYETHYLENE GLYCOL 3350
     Dosage: 17 G, QD
     Route: 048
  11. SILDENAFIL. [Concomitant]
     Active Substance: SILDENAFIL
     Dosage: 20 MG, TID
     Route: 048
     Dates: start: 20120605
  12. LASIX [Concomitant]
     Active Substance: FUROSEMIDE
     Dosage: 30 MG, BID
  13. TORSEMIDE. [Concomitant]
     Active Substance: TORSEMIDE
     Dosage: 20 MG, BID
     Route: 048
  14. ASPIRIN. [Suspect]
     Active Substance: ASPIRIN
     Dosage: 40.5 MG
     Route: 065
  15. SPIRONOLACTONE. [Concomitant]
     Active Substance: SPIRONOLACTONE
     Dosage: 25 MG, BID
     Dates: start: 20160223
  16. LASIX [Concomitant]
     Active Substance: FUROSEMIDE
     Dosage: UNK, TID
     Dates: start: 201304
  17. PREVACID [Concomitant]
     Active Substance: LANSOPRAZOLE
  18. PANTOPRAZOLE [Concomitant]
     Active Substance: PANTOPRAZOLE
     Dosage: 40 MG, QAM
     Route: 048
  19. ASPIRIN. [Suspect]
     Active Substance: ASPIRIN
     Indication: PRODUCT USED FOR UNKNOWN INDICATION
     Dosage: 162 MG
     Route: 065
  20. CHLORTHIAZIDE [Concomitant]
     Active Substance: CHLOROTHIAZIDE
     Dosage: 250 MG, BID
     Route: 048
     Dates: start: 20130605
  21. CALCIUM CARBONATE. [Concomitant]
     Active Substance: CALCIUM CARBONATE
     Dosage: 500 MG, QD
     Route: 048
  22. SILDENAFIL. [Concomitant]
     Active Substance: SILDENAFIL
     Dosage: 15 UNK
  23. POTASSIUM CHLORIDE. [Concomitant]
     Active Substance: POTASSIUM CHLORIDE
     Dosage: 20 MEQ, BID
     Route: 048
     Dates: start: 20130905
  24. LASIX [Concomitant]
     Active Substance: FUROSEMIDE
     Dosage: UNK
     Route: 042

REACTIONS (73)
  - Respiratory distress [Unknown]
  - Hospitalisation [Unknown]
  - Haemoptysis [Unknown]
  - Oxygen saturation decreased [Unknown]
  - Presyncope [Unknown]
  - Exercise tolerance decreased [Unknown]
  - Gastric fistula [Unknown]
  - Cyanosis central [Unknown]
  - Ventricular septal defect [Unknown]
  - Red blood cell count increased [Unknown]
  - Blood alkaline phosphatase increased [Unknown]
  - Xanthopsia [Unknown]
  - Pneumonia [Unknown]
  - N-terminal prohormone brain natriuretic peptide increased [Unknown]
  - Chest pain [Unknown]
  - Oral surgery [Unknown]
  - Alkalosis hypochloraemic [Unknown]
  - Heart valve incompetence [Unknown]
  - Tooth disorder [Unknown]
  - Atrial enlargement [Unknown]
  - Dilatation atrial [Unknown]
  - Complication associated with device [Unknown]
  - Ill-defined disorder [Unknown]
  - Malaise [Unknown]
  - Palpitations [Unknown]
  - Tricuspid valve incompetence [Unknown]
  - Platelet count decreased [Unknown]
  - Blood sodium decreased [Unknown]
  - Blood chloride decreased [Unknown]
  - Collateral circulation [Unknown]
  - Swelling [Unknown]
  - Dyspnoea exertional [Unknown]
  - Bilirubin conjugated increased [Unknown]
  - Protein total increased [Unknown]
  - Abdominal pain lower [Unknown]
  - Influenza [Unknown]
  - Embolism [Unknown]
  - Electrolyte imbalance [Unknown]
  - Weight decreased [Recovering/Resolving]
  - Vomiting [Not Recovered/Not Resolved]
  - Right ventricular dysfunction [Unknown]
  - Abdominal pain upper [Unknown]
  - Fatigue [Unknown]
  - Infusion site ulcer [Recovered/Resolved]
  - Gingival hypertrophy [Unknown]
  - Bundle branch block right [Unknown]
  - Dehydration [Unknown]
  - Viral infection [Unknown]
  - Liver disorder [Unknown]
  - Pulmonary hypertension [Unknown]
  - Tachycardia [Recovering/Resolving]
  - Heart valve replacement [Unknown]
  - Azotaemia [Unknown]
  - Skin lesion [Unknown]
  - Bacterial infection [Unknown]
  - Pyrexia [Recovering/Resolving]
  - Dyspnoea [Recovering/Resolving]
  - Diarrhoea [Not Recovered/Not Resolved]
  - Hypoxia [Unknown]
  - Nausea [Not Recovered/Not Resolved]
  - Tooth loss [Unknown]
  - Haematocrit increased [Unknown]
  - Red cell distribution width increased [Unknown]
  - Hypotension [Recovering/Resolving]
  - Myalgia [Unknown]
  - Right ventricular dilatation [Unknown]
  - Sternotomy [Unknown]
  - Ventricular hypertrophy [Unknown]
  - Dilatation ventricular [Unknown]
  - Sleep apnoea syndrome [Unknown]
  - Haemoglobin increased [Unknown]
  - Blood urea increased [Unknown]
  - Aspartate aminotransferase increased [Unknown]

NARRATIVE: CASE EVENT DATE: 20101005
